FAERS Safety Report 7378574-0 (Version None)
Quarter: 2011Q1

REPORT INFORMATION
  Report Type: 
  Country: None (occurrence: None)
  Receive Date: 20110328
  Receipt Date: 20110324
  Transmission Date: 20110831
  Serious: Yes (Hospitalization, Other)
  Sender: FDA-Public Use
  Company Number: US-ABBOTT-11P-163-0714069-00

PATIENT
  Sex: Female
  Weight: 81.72 kg

DRUGS (9)
  1. HUMIRA [Suspect]
     Indication: CROHN'S DISEASE
     Route: 058
     Dates: start: 20100101, end: 20100301
  2. PREDNISONE [Suspect]
     Indication: CROHN'S DISEASE
     Dosage: 40MG DAILY
     Dates: end: 20101101
  3. FOLIC ACID [Concomitant]
     Indication: PRODUCT USED FOR UNKNOWN INDICATION
  4. HUMIRA [Suspect]
     Dosage: STARTED WITH LOADING DOSE 160MG DAY ONE
     Route: 058
     Dates: start: 20101201
  5. ENTOCORT EC [Concomitant]
     Indication: PRODUCT USED FOR UNKNOWN INDICATION
  6. VITAMIN B-12 [Concomitant]
     Indication: PRODUCT USED FOR UNKNOWN INDICATION
  7. POTASSIUM CHLORIDE [Suspect]
     Indication: PRODUCT USED FOR UNKNOWN INDICATION
  8. HUMIRA [Suspect]
     Dosage: DAY 1
     Dates: start: 20101201
  9. PREDNISONE [Suspect]
     Dates: start: 20110301

REACTIONS (9)
  - LIP SWELLING [None]
  - C-REACTIVE PROTEIN INCREASED [None]
  - ERYTHEMA [None]
  - DRY SKIN [None]
  - DIZZINESS [None]
  - ANAEMIA [None]
  - FATIGUE [None]
  - DEHYDRATION [None]
  - WEIGHT INCREASED [None]
